FAERS Safety Report 4420068-6 (Version None)
Quarter: 2004Q2

REPORT INFORMATION
  Report Type: 
  Country: None (occurrence: None)
  Receive Date: 20040622
  Receipt Date: 20030513
  Transmission Date: 20050107
  Serious: Yes (Hospitalization)
  Sender: FDA-Public Use
  Company Number: 337921

PATIENT
  Sex: Female

DRUGS (1)
  1. XELODA [Suspect]
     Dosage: ORAL
     Route: 048
     Dates: start: 20020715

REACTIONS (3)
  - ALOPECIA [None]
  - DIARRHOEA [None]
  - HYPOTRICHOSIS [None]
